FAERS Safety Report 7895360-3 (Version None)
Quarter: 2011Q4

REPORT INFORMATION
  Report Type: 
  Country: None (occurrence: None)
  Receive Date: 20111106
  Receipt Date: 20110825
  Transmission Date: 20120403
  Serious: No
  Sender: FDA-Public Use
  Company Number: US-AMGEN-USASP2011043475

PATIENT
  Age: 49 Year
  Sex: Female
  Weight: 81.633 kg

DRUGS (7)
  1. FLUCONAZOLE [Concomitant]
     Indication: FUNGAL SKIN INFECTION
     Dosage: 100 MG, UNK
  2. ENBREL [Suspect]
     Indication: PRODUCT USED FOR UNKNOWN INDICATION
     Dosage: 50 MG, QWK
     Route: 058
  3. FISH OIL [Concomitant]
  4. VITAMIN D [Concomitant]
  5. VITAMIN B-12 [Concomitant]
     Dosage: 500 MG, UNK
  6. SULFAMETHOXAZOLE AND TRIMETHOPRIM [Concomitant]
     Indication: FUNGAL SKIN INFECTION
     Dosage: UNK
  7. DOXYCYCLINE MONOHYDRATE [Concomitant]
     Indication: FUNGAL SKIN INFECTION
     Dosage: 100 MG, UNK

REACTIONS (3)
  - INJECTION SITE PRURITUS [None]
  - FUNGAL SKIN INFECTION [None]
  - STAPHYLOCOCCAL INFECTION [None]
